FAERS Safety Report 6721822-8 (Version None)
Quarter: 2010Q2

REPORT INFORMATION
  Report Type: 
  Country: None (occurrence: None)
  Receive Date: 20100510
  Receipt Date: 20091209
  Transmission Date: 20101027
  Serious: Yes (Life-Threatening, Hospitalization)
  Sender: FDA-Public Use
  Company Number: LEO-2010-00327

PATIENT
  Age: 62 Year
  Sex: Male

DRUGS (7)
  1. INNOHEP [Suspect]
     Indication: LACUNAR INFARCTION
     Dosage: SUBCUTANEOUS
     Route: 058
     Dates: start: 20070819, end: 20070822
  2. TRANGOREX (AMIODARONE HYDROCHLORIDE) (200 MILLIGRAM) [Concomitant]
  3. FUROSEMIDE (FUROSEMIDE) (40 MILLIGRAM) [Concomitant]
  4. FERROGRADUMET (FERROUS SULFATE) [Concomitant]
  5. CAOSINA (CALCIUM CARBONATE) (2500 MILLIGRAM) [Concomitant]
  6. HYDRAPRESS (HYDRALAZINE HYDROCHLORIDE) (50 MILLIGRAM) [Concomitant]
  7. ACENOCOUMAROL (ACENOCOUMAROL) [Concomitant]

REACTIONS (9)
  - ABDOMINAL PAIN [None]
  - ACTIVATED PARTIAL THROMBOPLASTIN TIME [None]
  - ACTIVATED PARTIAL THROMBOPLASTIN TIME SHORTENED [None]
  - HAEMATOCRIT DECREASED [None]
  - HAEMOGLOBIN DECREASED [None]
  - OFF LABEL USE [None]
  - PROTHROMBIN TIME SHORTENED [None]
  - RETROPERITONEAL HAEMORRHAGE [None]
  - VOMITING [None]
